FAERS Safety Report 6697856-9 (Version None)
Quarter: 2010Q2

REPORT INFORMATION
  Report Type: 
  Country: None (occurrence: None)
  Receive Date: 20100427
  Receipt Date: 20100420
  Transmission Date: 20101027
  Serious: No
  Sender: FDA-Public Use
  Company Number: US-BIOGENIDEC-2010BI004700

PATIENT
  Age: 48 Year
  Sex: Female

DRUGS (3)
  1. TYSABRI [Suspect]
     Indication: MULTIPLE SCLEROSIS
     Route: 042
     Dates: start: 20050210, end: 20050210
  2. TYSABRI [Suspect]
     Route: 042
     Dates: start: 20080109, end: 20081202
  3. TYSABRI [Suspect]
     Route: 042
     Dates: start: 20090512

REACTIONS (4)
  - GENERAL PHYSICAL HEALTH DETERIORATION [None]
  - LOSS OF CONTROL OF LEGS [None]
  - MUSCLE SPASMS [None]
  - MUSCULAR WEAKNESS [None]
